FAERS Safety Report 12240689 (Version 20)
Quarter: 2019Q4

REPORT INFORMATION
  Report Type: Report from Study
  Country: CA (occurrence: CA)
  Receive Date: 20160406
  Receipt Date: 20191227
  Transmission Date: 20200122
  Serious: Yes (Hospitalization, Other)
  Sender: FDA-Public Use
  Company Number: CA-ROCHE-1188566

PATIENT
  Age: 53 Year
  Sex: Female
  Weight: 100.2 kg

DRUGS (23)
  1. RITUXAN [Suspect]
     Active Substance: RITUXIMAB
     Route: 042
     Dates: start: 20180320, end: 20180320
  2. CELEXA [Concomitant]
     Active Substance: CITALOPRAM HYDROBROMIDE
  3. BENADRYL [Concomitant]
     Active Substance: DIPHENHYDRAMINE HYDROCHLORIDE
     Indication: THROAT IRRITATION
     Route: 048
     Dates: start: 20140903
  4. RANITIDINE. [Concomitant]
     Active Substance: RANITIDINE
  5. DIPHENHYDRAMINE HCL [Concomitant]
     Active Substance: DIPHENHYDRAMINE HYDROCHLORIDE
     Route: 048
     Dates: start: 20150417, end: 20150417
  6. DIPHENHYDRAMINE HCL [Concomitant]
     Active Substance: DIPHENHYDRAMINE HYDROCHLORIDE
     Route: 048
     Dates: start: 20160420, end: 20160420
  7. PREDNISONE. [Concomitant]
     Active Substance: PREDNISONE
  8. METHYLPREDNISOLONE. [Concomitant]
     Active Substance: METHYLPREDNISOLONE
     Indication: PREMEDICATION
     Route: 042
     Dates: start: 20120627
  9. NASONEX [Concomitant]
     Active Substance: MOMETASONE FUROATE
  10. OMEGA 3 [DOCOSAHEXAENOIC ACID;EICOSAPENTAENOIC ACID] [Concomitant]
     Active Substance: DOCONEXENT\ICOSAPENT
  11. DIPHENHYDRAMINE HCL [Concomitant]
     Active Substance: DIPHENHYDRAMINE HYDROCHLORIDE
     Route: 048
     Dates: start: 20150605, end: 20150605
  12. ANASTROZOLE. [Concomitant]
     Active Substance: ANASTROZOLE
  13. ACETAMINOPHEN. [Concomitant]
     Active Substance: ACETAMINOPHEN
  14. ARAVA [Concomitant]
     Active Substance: LEFLUNOMIDE
  15. FOSAVANCE [Concomitant]
     Active Substance: ALENDRONATE SODIUM\CHOLECALCIFEROL
  16. ATORVASTATIN [Concomitant]
     Active Substance: ATORVASTATIN
  17. CALCIUM [Concomitant]
     Active Substance: CALCIUM
  18. RITUXAN [Suspect]
     Active Substance: RITUXIMAB
     Indication: RHEUMATOID ARTHRITIS
     Dosage: LAST DOSE: 07/APR/2015, 17/APR/2015, 05/JUN/2015
     Route: 042
     Dates: start: 20120627
  19. DIPHENHYDRAMINE HCL [Concomitant]
     Active Substance: DIPHENHYDRAMINE HYDROCHLORIDE
     Indication: PREMEDICATION
     Route: 048
     Dates: start: 20120627, end: 20140903
  20. DIPHENHYDRAMINE HCL [Concomitant]
     Active Substance: DIPHENHYDRAMINE HYDROCHLORIDE
     Route: 048
     Dates: start: 20140917, end: 20140917
  21. ACETAMINOPHEN. [Concomitant]
     Active Substance: ACETAMINOPHEN
     Indication: PREMEDICATION
     Route: 048
     Dates: start: 20120627
  22. ANASTROZOLE. [Concomitant]
     Active Substance: ANASTROZOLE
  23. CELEXA [Concomitant]
     Active Substance: CITALOPRAM HYDROBROMIDE

REACTIONS (22)
  - Head injury [Unknown]
  - Headache [Not Recovered/Not Resolved]
  - Pyrexia [Unknown]
  - Liver function test abnormal [Unknown]
  - Sinusitis [Recovering/Resolving]
  - Vulvovaginal mycotic infection [Not Recovered/Not Resolved]
  - Blood urine present [Unknown]
  - Cholelithiasis [Unknown]
  - Infusion related reaction [Recovered/Resolved]
  - Lung disorder [Not Recovered/Not Resolved]
  - Fall [Unknown]
  - Infusion related reaction [Recovered/Resolved]
  - Blood cholesterol increased [Unknown]
  - Mastitis [Recovering/Resolving]
  - Oropharyngeal pain [Unknown]
  - Cough [Recovered/Resolved]
  - Ear infection [Not Recovered/Not Resolved]
  - Arthralgia [Not Recovered/Not Resolved]
  - Mass [Not Recovered/Not Resolved]
  - Dyspnoea [Not Recovered/Not Resolved]
  - Oxygen saturation decreased [Unknown]
  - Nasopharyngitis [Not Recovered/Not Resolved]

NARRATIVE: CASE EVENT DATE: 201208
